FAERS Safety Report 7574506-0 (Version None)
Quarter: 2011Q2

REPORT INFORMATION
  Report Type: 
  Country: None (occurrence: None)
  Receive Date: 20110627
  Receipt Date: 20110106
  Transmission Date: 20111010
  Serious: Yes (Hospitalization, Other)
  Sender: FDA-Public Use
  Company Number: US-BAYER-201033657NA

PATIENT
  Age: 15 Year
  Sex: Female
  Weight: 77.098 kg

DRUGS (12)
  1. PAXIL CR [Concomitant]
     Dosage: UNK MG, UNK
     Dates: start: 20041018
  2. BENTYL [Concomitant]
  3. PROMETHAZINE [Concomitant]
     Dosage: UNK MG, UNK
     Dates: start: 20040927
  4. JASMINE [Concomitant]
     Dosage: UNK UNK, BID
     Route: 048
  5. PHENERGAN HCL [Concomitant]
  6. DICYCLOMINE [Concomitant]
     Dosage: UNK MG, UNK
     Dates: start: 20040927
  7. YASMIN [Suspect]
     Indication: ORAL CONTRACEPTION
     Route: 048
     Dates: start: 20040601, end: 20041115
  8. ZYRTEC [Concomitant]
     Indication: MULTIPLE ALLERGIES
     Dosage: UNK MG, UNK
     Dates: start: 20031201, end: 20050801
  9. TUSSI-BID [DEXTROMETHORPHAN HYDROBROMIDE,GUAIFENESIN] [Concomitant]
     Dosage: UNK
  10. DECONGESTANT [CHLORPHENAM,PHENYLEPHR,PHENYLPROPANOLAM,PHENYLTOLOXAM] [Concomitant]
  11. YAZ [Suspect]
     Indication: ORAL CONTRACEPTION
     Route: 048
     Dates: start: 20040601, end: 20041115
  12. PREVACID [Concomitant]

REACTIONS (8)
  - DYSPEPSIA [None]
  - GALLBLADDER DISORDER [None]
  - VOMITING [None]
  - ABDOMINAL PAIN [None]
  - IMPAIRED GASTRIC EMPTYING [None]
  - NAUSEA [None]
  - PAIN [None]
  - BILIARY DYSKINESIA [None]
